FAERS Safety Report 6519524 (Version 3)
Quarter: 2013Q4

REPORT INFORMATION
  Report Type: Spontaneous
  Country: FR (occurrence: FR)
  Receive Date: 20080104
  Receipt Date: 20131111
  Transmission Date: 20140711
  Serious: Yes (Death)
  Sender: FDA-Public Use
  Company Number: FR-JNJFOC-20080100332

PATIENT
  Age: 84 Year
  Sex: Female

DRUGS (1)
  1. HALDOL DECANOAS [Suspect]
     Indication: AGITATION
     Route: 030
     Dates: start: 20070315, end: 20070320

REACTIONS (8)
  - Extrapyramidal disorder [Fatal]
  - Bedridden [Fatal]
  - Pneumonia aspiration [Fatal]
  - Somnolence [Unknown]
  - Sepsis syndrome [Unknown]
  - Dependent personality disorder [Unknown]
  - Inflammation [Unknown]
  - Inappropriate schedule of drug administration [Unknown]
